FAERS Safety Report 21978860 (Version 2)
Quarter: 2023Q1

REPORT INFORMATION
  Report Type: Spontaneous
  Country: US (occurrence: US)
  Receive Date: 20230210
  Receipt Date: 20230317
  Transmission Date: 20230418
  Serious: Yes (Death)
  Sender: FDA-Public Use
  Company Number: US-JNJFOC-20230220383

PATIENT
  Age: 8 Decade
  Sex: Male

DRUGS (1)
  1. MENS ROGAINE EXTRA STRENGTH [Suspect]
     Active Substance: MINOXIDIL
     Indication: Alopecia
     Dosage: HE STARTED USING ROGAINE MAYBE 3-5 YEARS AGO. HE USED IT ONCE OR TWICE A DAY. HIS WIFE THINKS HE USE
     Route: 065

REACTIONS (1)
  - Death [Fatal]
